FAERS Safety Report 6663904-5 (Version None)
Quarter: 2010Q2

REPORT INFORMATION
  Report Type: 
  Country: None (occurrence: None)
  Receive Date: 20100401
  Receipt Date: 20100311
  Transmission Date: 20101027
  Serious: Yes (Life-Threatening, Hospitalization)
  Sender: FDA-Public Use
  Company Number: JP-MERCK-1003USA00473

PATIENT
  Age: 77 Year
  Sex: Male

DRUGS (5)
  1. ZETIA [Suspect]
     Indication: DYSLIPIDAEMIA
     Route: 048
     Dates: start: 20090101, end: 20100203
  2. LOXONIN [Suspect]
     Indication: NASOPHARYNGITIS
     Route: 048
     Dates: start: 20100109, end: 20100118
  3. FLAVERIC [Suspect]
     Indication: NASOPHARYNGITIS
     Route: 048
     Dates: start: 20100109, end: 20100118
  4. METHISTA [Suspect]
     Indication: NASOPHARYNGITIS
     Route: 048
     Dates: start: 20100109, end: 20100118
  5. CLARITH [Suspect]
     Indication: NASOPHARYNGITIS
     Route: 048
     Dates: start: 20100109, end: 20100118

REACTIONS (1)
  - PNEUMONIA [None]
